FAERS Safety Report 11340950 (Version 2)
Quarter: 2016Q1

REPORT INFORMATION
  Report Type: Spontaneous
  Country: US (occurrence: US)
  Receive Date: 20150805
  Receipt Date: 20160205
  Transmission Date: 20160525
  Serious: No
  Sender: FDA-Public Use
  Company Number: US-JNJFOC-20150619400

PATIENT

DRUGS (4)
  1. RITONAVIR. [Interacting]
     Active Substance: RITONAVIR
     Indication: CHRONIC HEPATITIS C
  2. PARITAPREVIR [Interacting]
     Active Substance: PARITAPREVIR
     Indication: CHRONIC HEPATITIS C
  3. KETOCONAZOLE. [Suspect]
     Active Substance: KETOCONAZOLE
     Indication: ANTIFUNGAL TREATMENT
     Route: 065
  4. OMBITASVIR [Interacting]
     Active Substance: OMBITASVIR
     Indication: CHRONIC HEPATITIS C

REACTIONS (2)
  - Drug level increased [Recovering/Resolving]
  - Drug interaction [Unknown]
